FAERS Safety Report 17589330 (Version 2)
Quarter: 2021Q2

REPORT INFORMATION
  Report Type: Spontaneous
  Country: US (occurrence: US)
  Receive Date: 20200327
  Receipt Date: 20210413
  Transmission Date: 20210716
  Serious: No
  Sender: FDA-Public Use
  Company Number: US-ALLERGAN-1931367US

PATIENT
  Age: 27 Year
  Sex: Female

DRUGS (1)
  1. LATISSE [Suspect]
     Active Substance: BIMATOPROST
     Indication: GROWTH OF EYELASHES
     Dosage: APPLY 1 DROP TO BRUSH AND APPLY TO EYELASH LINE AND REPEAT WITH NEW BRUSH ON OTHER EYELASH LINE
     Route: 061

REACTIONS (3)
  - Eye swelling [Unknown]
  - Ocular hyperaemia [Recovered/Resolved]
  - Eye pruritus [Recovered/Resolved]
